FAERS Safety Report 8250866-2 (Version None)
Quarter: 2012Q1

REPORT INFORMATION
  Report Type: 
  Country: None (occurrence: None)
  Receive Date: 20120328
  Receipt Date: 20120313
  Transmission Date: 20120608
  Serious: Yes (Other)
  Sender: FDA-Public Use
  Company Number: SIM_00350_2012

PATIENT
  Sex: Female
  Weight: 68.0396 kg

DRUGS (1)
  1. HYPOTEARS (NOVARTIS) [Suspect]
     Indication: PRODUCT USED FOR UNKNOWN INDICATION
     Dosage: OPHTHALMIC
     Route: 047
     Dates: start: 20100421, end: 20100422

REACTIONS (5)
  - CATARACT OPERATION [None]
  - RETINAL DETACHMENT [None]
  - PRODUCT FORMULATION ISSUE [None]
  - INSTILLATION SITE IRRITATION [None]
  - SELF-MEDICATION [None]
